FAERS Safety Report 23822605 (Version 1)
Quarter: 2024Q2

REPORT INFORMATION
  Report Type: Spontaneous
  Country: US (occurrence: US)
  Receive Date: 20240506
  Receipt Date: 20240506
  Transmission Date: 20240716
  Serious: No
  Sender: FDA-Public Use
  Company Number: US-ELI_LILLY_AND_COMPANY-US202404019188

PATIENT
  Age: 30 Year
  Sex: Female

DRUGS (1)
  1. BARICITINIB [Suspect]
     Active Substance: BARICITINIB
     Indication: Alopecia universalis
     Dosage: 2 MG, DAILY
     Route: 048
     Dates: end: 202312

REACTIONS (2)
  - Illness [Unknown]
  - Off label use [Unknown]
